FAERS Safety Report 8366029-6 (Version None)
Quarter: 2012Q2

REPORT INFORMATION
  Report Type: 
  Country: None (occurrence: None)
  Receive Date: 20120515
  Receipt Date: 20120502
  Transmission Date: 20120825
  Serious: Yes (Other)
  Sender: FDA-Public Use
  Company Number: 2012P1019651

PATIENT
  Age: 18 Year
  Sex: Female

DRUGS (3)
  1. MEBENDAZOLE [Concomitant]
  2. MOVIPREP [Concomitant]
  3. ALBENDAZOLE (NO PREF. NAME) [Suspect]
     Indication: ENTEROBIASIS
     Dosage: 400 MG;
     Dates: start: 20030101, end: 20090101

REACTIONS (4)
  - BACK PAIN [None]
  - BONE MARROW DISORDER [None]
  - PAIN IN EXTREMITY [None]
  - ARTHRALGIA [None]
